FAERS Safety Report 19520541 (Version 2)
Quarter: 2021Q3

REPORT INFORMATION
  Report Type: Spontaneous
  Country: US (occurrence: US)
  Receive Date: 20210712
  Receipt Date: 20210713
  Transmission Date: 20211014
  Serious: No
  Sender: FDA-Public Use
  Company Number: US-FOUNDATIONCONSUMERHC-2021-US-012815

PATIENT
  Age: 22 Year
  Sex: Female
  Weight: 97.52 kg

DRUGS (6)
  1. FISH OIL [Concomitant]
     Active Substance: FISH OIL
  2. TYLENOL [Concomitant]
     Active Substance: ACETAMINOPHEN
  3. PRIMATENE MIST [Concomitant]
     Active Substance: EPINEPHRINE
  4. IBUPROFEN. [Concomitant]
     Active Substance: IBUPROFEN
  5. FLAXSEED [Concomitant]
     Active Substance: FLAX SEED
  6. AFTERA [Suspect]
     Active Substance: LEVONORGESTREL
     Indication: POST COITAL CONTRACEPTION
     Dosage: 1.5 MG X 5 DOSES OF AFTERA, PLAN B, AND VARIOUS EMERGENCY CONTRACEPTIVES
     Route: 048
     Dates: start: 2020, end: 20210606

REACTIONS (10)
  - Amenorrhoea [Recovered/Resolved]
  - Constipation [Not Recovered/Not Resolved]
  - Abdominal distension [Not Recovered/Not Resolved]
  - Flatulence [Not Recovered/Not Resolved]
  - Headache [Not Recovered/Not Resolved]
  - Vulvovaginal dryness [Recovered/Resolved]
  - Menstruation irregular [Not Recovered/Not Resolved]
  - Menstruation delayed [Unknown]
  - Abdominal rigidity [Not Recovered/Not Resolved]
  - Dysmenorrhoea [Not Recovered/Not Resolved]

NARRATIVE: CASE EVENT DATE: 2020
